FAERS Safety Report 12589427 (Version 1)
Quarter: 2016Q3

REPORT INFORMATION
  Report Type: Report from Study
  Country: US (occurrence: US)
  Receive Date: 20160725
  Receipt Date: 20160725
  Transmission Date: 20161109
  Serious: Yes (Hospitalization, Other)
  Sender: FDA-Public Use
  Company Number: US-TEVA-643550USA

PATIENT
  Age: 39 Year
  Sex: Female

DRUGS (6)
  1. CLOZAPINE. [Suspect]
     Active Substance: CLOZAPINE
     Route: 048
     Dates: start: 20160310, end: 20160311
  2. LISINOPRIL. [Concomitant]
     Active Substance: LISINOPRIL
     Dosage: 2.5 UNKNOWN DAILY;
     Dates: start: 20160310, end: 20160311
  3. VITAMIN D3 [Concomitant]
     Active Substance: CHOLECALCIFEROL
     Dosage: 1000 IU (INTERNATIONAL UNIT) DAILY;
     Dates: start: 20160310, end: 20160311
  4. REMERON [Concomitant]
     Active Substance: MIRTAZAPINE
     Dosage: 30 UNKNOWN DAILY; HS
     Dates: start: 20160310, end: 20160311
  5. VALACYCLOVIR [Concomitant]
     Active Substance: VALACYCLOVIR HYDROCHLORIDE
     Dosage: 1000 UNKNOWN DAILY;
     Dates: start: 20160310, end: 20160311
  6. CLOZAPINE. [Suspect]
     Active Substance: CLOZAPINE
     Route: 048
     Dates: start: 20160311, end: 20160312

REACTIONS (3)
  - Bipolar disorder [Unknown]
  - Psychotic disorder [Recovered/Resolved]
  - Catatonia [Recovered/Resolved]

NARRATIVE: CASE EVENT DATE: 20160311
